FAERS Safety Report 9328335 (Version 1)
Quarter: 2013Q2

REPORT INFORMATION
  Report Type: Spontaneous
  Country: US (occurrence: US)
  Receive Date: 20130604
  Receipt Date: 20130604
  Transmission Date: 20140414
  Serious: No
  Sender: FDA-Public Use
  Company Number: US-SANOFI-AVENTIS-2012SA048316

PATIENT
  Age: 54 Year
  Sex: Female
  Weight: 117.93 kg

DRUGS (5)
  1. LANTUS SOLOSTAR [Suspect]
     Indication: TYPE 2 DIABETES MELLITUS
     Dosage: DOSE:43 UNIT(S)
     Route: 058
     Dates: start: 200808
  2. SOLOSTAR [Suspect]
     Indication: TYPE 2 DIABETES MELLITUS
     Dates: start: 200808
  3. GLIPIZIDE [Concomitant]
     Indication: DIABETES MELLITUS
     Dates: start: 2008
  4. METFORMIN HYDROCHLORIDE [Concomitant]
     Indication: DIABETES MELLITUS
     Dates: start: 1999
  5. ATENOLOL [Concomitant]
     Indication: BLOOD PRESSURE
     Dates: start: 2009

REACTIONS (3)
  - Pruritus generalised [Recovered/Resolved]
  - Incorrect storage of drug [Unknown]
  - Rash [Recovered/Resolved]
